FAERS Safety Report 7629171-0 (Version None)
Quarter: 2011Q3

REPORT INFORMATION
  Report Type: 
  Country: None (occurrence: None)
  Receive Date: 20110722
  Receipt Date: 20110715
  Transmission Date: 20111222
  Serious: Yes (Life-Threatening, Hospitalization)
  Sender: FDA-Public Use
  Company Number: PHFR2006GB03019

PATIENT
  Age: 66 Year
  Sex: Male

DRUGS (1)
  1. DICLOFENAC SODIUM [Suspect]
     Indication: BACK PAIN
     Route: 065

REACTIONS (15)
  - AXILLARY PAIN [None]
  - NECROSIS [None]
  - SKIN LESION [None]
  - SUPRAPUBIC PAIN [None]
  - PSEUDOMONAS INFECTION [None]
  - ECTHYMA [None]
  - ESCHAR [None]
  - MALAISE [None]
  - DECREASED APPETITE [None]
  - NEUTROPENIA [None]
  - LOCALISED OEDEMA [None]
  - WHITE BLOOD CELL COUNT DECREASED [None]
  - GANGRENE [None]
  - LETHARGY [None]
  - ERYTHEMA [None]
